FAERS Safety Report 8642864 (Version 5)
Quarter: 2013Q3

REPORT INFORMATION
  Report Type: Spontaneous
  Country: GB (occurrence: None)
  Receive Date: 20120615
  Receipt Date: 20130807
  Transmission Date: 20140515
  Serious: Yes (Other)
  Sender: FDA-Public Use
  Company Number: 2012-2443

PATIENT
  Age: 6 Year
  Sex: Female
  Weight: 13.2 kg

DRUGS (2)
  1. INCRELEX [Suspect]
     Indication: FAILURE TO THRIVE
     Dosage: 1 MG (0.5 MG, 2 IN 1 D), SUBCUTANEOUS
     Route: 058
     Dates: start: 20120314, end: 20120403
  2. INCRELEX [Suspect]
     Indication: OFF LABEL USE
     Dosage: 1 MG (0.5 MG, 2 IN 1 D), SUBCUTANEOUS
     Route: 058
     Dates: start: 20120314, end: 20120403

REACTIONS (2)
  - Injection site mass [None]
  - Skin discolouration [None]
